FAERS Safety Report 6813464-0 (Version None)
Quarter: 2010Q3

REPORT INFORMATION
  Report Type: 
  Country: None (occurrence: None)
  Receive Date: 20100701
  Receipt Date: 20100624
  Transmission Date: 20110219
  Serious: Yes (Other)
  Sender: FDA-Public Use
  Company Number: US-PFIZER INC-2010038557

PATIENT
  Sex: Female
  Weight: 85.275 kg

DRUGS (16)
  1. CHANTIX [Suspect]
     Indication: SMOKING CESSATION THERAPY
     Dosage: UNK
     Dates: start: 20090101
  2. CHANTIX [Suspect]
     Dosage: UNK
  3. LASIX [Concomitant]
     Dosage: UNK
  4. LASIX [Concomitant]
     Dosage: UNIT DOSE: 20;
  5. LORAZEPAM [Concomitant]
     Dosage: UNK
  6. INSULIN [Concomitant]
     Indication: DIABETES MELLITUS
     Dosage: UNK
  7. ATIVAN [Concomitant]
     Dosage: FREQUENCY: 3X/DAY,
  8. DARVOCET [Concomitant]
  9. HUMULIN R [Concomitant]
  10. ALBUTEROL [Concomitant]
  11. KLOR-CON [Concomitant]
  12. ZOCOR [Concomitant]
  13. NORVASC [Concomitant]
  14. SOMA [Concomitant]
     Dosage: UNIT DOSE: 350;
  15. LOVAZA [Concomitant]
  16. TRICOR [Concomitant]

REACTIONS (8)
  - AGGRESSION [None]
  - AGITATION [None]
  - ANHEDONIA [None]
  - ANXIETY [None]
  - BALANCE DISORDER [None]
  - DEPRESSION [None]
  - FALL [None]
  - THINKING ABNORMAL [None]
